FAERS Safety Report 24853847 (Version 3)
Quarter: 2025Q1

REPORT INFORMATION
  Report Type: Report from Study
  Country: EG (occurrence: EG)
  Receive Date: 20250117
  Receipt Date: 20250226
  Transmission Date: 20250408
  Serious: Yes (Other)
  Sender: NOVO NORDISK
  Company Number: EG-NOVOPROD-1349508

PATIENT
  Age: 219 Month
  Sex: Male
  Weight: 70 kg

DRUGS (2)
  1. ACTRAPID [Suspect]
     Active Substance: INSULIN HUMAN
     Route: 058
  2. ACTRAPID [Suspect]
     Active Substance: INSULIN HUMAN
     Indication: Type 1 diabetes mellitus
     Dosage: 70 IU, QD (20IU BEFORE BREAKFAST -30IU LUNCH -20IU DINNER)
     Route: 058
     Dates: start: 2021

REACTIONS (7)
  - Incorrect dose administered by device [Unknown]
  - Diabetic hyperglycaemic coma [Recovered/Resolved]
  - Device malfunction [Unknown]
  - Hyperglycaemia [Not Recovered/Not Resolved]
  - Hypoglycaemia [Not Recovered/Not Resolved]
  - Wrong technique in product usage process [Unknown]
  - Product storage error [Unknown]

NARRATIVE: CASE EVENT DATE: 20230101
